FAERS Safety Report 17666431 (Version 2)
Quarter: 2020Q3

REPORT INFORMATION
  Report Type: Spontaneous
  Country: US (occurrence: US)
  Receive Date: 20200414
  Receipt Date: 20200916
  Transmission Date: 20201102
  Serious: Yes (Other)
  Sender: FDA-Public Use
  Company Number: US-ASTRAZENECA-2020SE47814

PATIENT
  Age: 22569 Day
  Sex: Male

DRUGS (29)
  1. METFORMIN [Concomitant]
     Active Substance: METFORMIN HYDROCHLORIDE
  2. LISINOPRIL. [Concomitant]
     Active Substance: LISINOPRIL
  3. METOPROLOL TARTRATE. [Concomitant]
     Active Substance: METOPROLOL TARTRATE
  4. ASPIRIN. [Concomitant]
     Active Substance: ASPIRIN
  5. REPLESTA [Concomitant]
     Active Substance: CHOLECALCIFEROL
  6. ISOSORB MONO [Concomitant]
     Active Substance: ISOSORBIDE MONONITRATE
  7. FLUTICASONE. [Concomitant]
     Active Substance: FLUTICASONE
  8. NITROGLYCERIN. [Concomitant]
     Active Substance: NITROGLYCERIN
  9. CARDIOLITE [Concomitant]
     Active Substance: TECHNETIUM TC-99M SESTAMIBI
  10. ONGLYZA [Suspect]
     Active Substance: SAXAGLIPTIN HYDROCHLORIDE
     Indication: INSULIN-REQUIRING TYPE 2 DIABETES MELLITUS
     Route: 048
     Dates: start: 201106
  11. LEVITRA [Concomitant]
     Active Substance: VARDENAFIL HYDROCHLORIDE
  12. TAMSULOSIN [Concomitant]
     Active Substance: TAMSULOSIN
  13. MECLIZINE [Concomitant]
     Active Substance: MECLIZINE HYDROCHLORIDE
  14. ONGLYZA [Suspect]
     Active Substance: SAXAGLIPTIN HYDROCHLORIDE
     Indication: INSULIN-REQUIRING TYPE 2 DIABETES MELLITUS
     Dosage: 5.0MG UNKNOWN
     Route: 048
     Dates: start: 20110624, end: 20131230
  15. JANUVIA [Concomitant]
     Active Substance: SITAGLIPTIN PHOSPHATE
  16. METRONIDAZOLE. [Concomitant]
     Active Substance: METRONIDAZOLE
  17. CLARITHROMYC [Concomitant]
  18. ASTEPRO [Concomitant]
     Active Substance: AZELASTINE HYDROCHLORIDE
  19. SIMVASTATIN. [Concomitant]
     Active Substance: SIMVASTATIN
  20. DOXYCYCLINE MONO [Concomitant]
     Active Substance: DOXYCYCLINE
  21. AMLODIPINE BESYLATE. [Concomitant]
     Active Substance: AMLODIPINE BESYLATE
  22. PANTOPRAZOLE SODIUM. [Concomitant]
     Active Substance: PANTOPRAZOLE SODIUM
  23. TRIAMCINOLON [Concomitant]
  24. CALCIPOTRIENE. [Concomitant]
     Active Substance: CALCIPOTRIENE
  25. FUROSEMIDE. [Concomitant]
     Active Substance: FUROSEMIDE
  26. KLOR?CON [Concomitant]
     Active Substance: POTASSIUM CHLORIDE
  27. CIALIS [Concomitant]
     Active Substance: TADALAFIL
  28. CORDRAN [Concomitant]
     Active Substance: FLURANDRENOLIDE
  29. FLONASE [Concomitant]
     Active Substance: FLUTICASONE PROPIONATE

REACTIONS (3)
  - Chronic left ventricular failure [Unknown]
  - Cardiac failure congestive [Unknown]
  - Cardiac failure [Unknown]

NARRATIVE: CASE EVENT DATE: 20110714
